FAERS Safety Report 14412097 (Version 1)
Quarter: 2018Q1

REPORT INFORMATION
  Report Type: Spontaneous
  Country: US (occurrence: US)
  Receive Date: 20180119
  Receipt Date: 20180119
  Transmission Date: 20180509
  Serious: Yes (Other)
  Sender: FDA-Public Use
  Company Number: US-JNJFOC-20180111937

PATIENT
  Sex: Female

DRUGS (2)
  1. LEVAQUIN [Suspect]
     Active Substance: LEVOFLOXACIN
     Indication: PNEUMONIA
     Route: 065
     Dates: start: 20150604, end: 201506
  2. LEVAQUIN [Suspect]
     Active Substance: LEVOFLOXACIN
     Indication: ATELECTASIS
     Route: 065
     Dates: start: 20150604, end: 201506

REACTIONS (4)
  - Staphylococcal infection [Unknown]
  - Respiratory tract infection [Not Recovered/Not Resolved]
  - Actinic keratosis [Unknown]
  - Squamous cell carcinoma [Not Recovered/Not Resolved]
